FAERS Safety Report 19078487 (Version 2)
Quarter: 2021Q2

REPORT INFORMATION
  Report Type: Other
  Country: US (occurrence: US)
  Receive Date: 20210331
  Receipt Date: 20210616
  Transmission Date: 20210717
  Serious: Yes (Life-Threatening, Hospitalization)
  Sender: FDA-Public Use
  Company Number: US-NEUROCRINE BIOSCIENCES INC.-2021NBI01412

PATIENT

DRUGS (71)
  1. TYLENOL [Concomitant]
     Active Substance: ACETAMINOPHEN
     Dosage: 650 MILLIGRAM, PRN
     Route: 048
     Dates: start: 20210504
  2. CLONAZEPAM. [Concomitant]
     Active Substance: CLONAZEPAM
     Dosage: 1 MG BID AND 2 MG QHS
     Route: 048
     Dates: start: 20180206, end: 20181008
  3. MIRALAX [Concomitant]
     Active Substance: POLYETHYLENE GLYCOL 3350
     Dosage: 17 GRAM, QD
     Route: 048
     Dates: end: 20190409
  4. CLOZAPINE. [Concomitant]
     Active Substance: CLOZAPINE
     Dosage: 500 MILLIGRAM, QHS
     Route: 048
     Dates: start: 20170317, end: 20170815
  5. HALOPERIDOL. [Concomitant]
     Active Substance: HALOPERIDOL
     Dosage: 2.5 MILLIGRAM, QHS
     Route: 048
     Dates: start: 20171012, end: 20171109
  6. HALOPERIDOL. [Concomitant]
     Active Substance: HALOPERIDOL
     Dosage: UNK
     Route: 048
     Dates: start: 20171117, end: 20171221
  7. HALOPERIDOL. [Concomitant]
     Active Substance: HALOPERIDOL
     Dosage: UNK
     Route: 048
     Dates: end: 20200813
  8. MIRTAZAPINE. [Concomitant]
     Active Substance: MIRTAZAPINE
     Dosage: 15 MILLIGRAM, QHS AND DISCONTINUE IN 1 WEEK
     Route: 048
     Dates: start: 20190701, end: 20191018
  9. PROPRANOLOL HCL [Concomitant]
     Active Substance: PROPRANOLOL HYDROCHLORIDE
     Dosage: 10 MILLIGRAM, TID
     Route: 048
     Dates: start: 20180827, end: 20200902
  10. TRIHEXYPHENIDYL HCL [Concomitant]
     Active Substance: TRIHEXYPHENIDYL HYDROCHLORIDE
     Dosage: UNK
     Route: 048
     Dates: start: 20200813, end: 20200902
  11. OLANZAPINE. [Concomitant]
     Active Substance: OLANZAPINE
     Dosage: 5 MILLIGRAM, QD
     Route: 048
     Dates: start: 20210510
  12. AMANTADINE HCL [Concomitant]
     Active Substance: AMANTADINE HYDROCHLORIDE
     Dosage: 100 MILLIGRAM, TID
     Route: 048
     Dates: start: 20180621, end: 20190701
  13. AMANTADINE HCL [Concomitant]
     Active Substance: AMANTADINE HYDROCHLORIDE
     Dosage: 50 MILLIGRAM, TID
     Dates: start: 20190701, end: 20191018
  14. MIRTAZAPINE. [Concomitant]
     Active Substance: MIRTAZAPINE
     Dosage: 30 MILLIGRAM, QHS
     Route: 048
     Dates: start: 20170731, end: 20190701
  15. PROPRANOLOL HCL [Concomitant]
     Active Substance: PROPRANOLOL HYDROCHLORIDE
     Dosage: 10 MILLIGRAM
     Route: 048
     Dates: start: 20200902, end: 20200930
  16. TRANSDERM SCOP [Concomitant]
     Active Substance: SCOPOLAMINE
     Dosage: 1 DOSAGE FORM, EVERY 72 HRS
     Dates: start: 20200130, end: 20200702
  17. TRINTELLIX [Concomitant]
     Active Substance: VORTIOXETINE HYDROBROMIDE
     Dosage: 10 MILLIGRAM, QD
     Route: 048
     Dates: start: 20210113, end: 20210208
  18. CLONAZEPAM. [Concomitant]
     Active Substance: CLONAZEPAM
     Dosage: 1 MG BID AND 2 MG QHS
     Route: 048
     Dates: end: 20200831
  19. CLONAZEPAM. [Concomitant]
     Active Substance: CLONAZEPAM
     Dosage: 2 MILLIGRAM, TID
     Route: 048
     Dates: start: 20171221, end: 20180206
  20. NEXIUM [Concomitant]
     Active Substance: ESOMEPRAZOLE MAGNESIUM
     Dosage: 20 MILLIGRAM, BID
     Route: 048
     Dates: start: 20210504
  21. MIRALAX [Concomitant]
     Active Substance: POLYETHYLENE GLYCOL 3350
     Dosage: 17 GRAM, QD
     Route: 048
     Dates: start: 20190924, end: 20200312
  22. AMANTADINE HCL [Concomitant]
     Active Substance: AMANTADINE HYDROCHLORIDE
     Dosage: 100 MILLIGRAM, TID
     Route: 048
     Dates: start: 20191018, end: 20201023
  23. BACLOFEN. [Concomitant]
     Active Substance: BACLOFEN
     Dosage: UNK
     Route: 048
     Dates: start: 20170921, end: 20171102
  24. COLACE [Concomitant]
     Active Substance: DOCUSATE SODIUM
     Dosage: 100 MILLIGRAM, BID
     Route: 048
     Dates: end: 20190409
  25. MODAFINIL. [Concomitant]
     Active Substance: MODAFINIL
     Dosage: UNK
     Route: 048
     Dates: start: 20191018, end: 20191125
  26. TRIHEXYPHENIDYL HCL [Concomitant]
     Active Substance: TRIHEXYPHENIDYL HYDROCHLORIDE
     Dosage: 5 MILLIGRAM, BID
     Route: 048
     Dates: end: 20200813
  27. CLONAZEPAM. [Concomitant]
     Active Substance: CLONAZEPAM
     Dosage: 1 MG BID AND 2 MG QHS
     Route: 048
     Dates: end: 20210218
  28. OLANZAPINE. [Concomitant]
     Active Substance: OLANZAPINE
     Dosage: 10 MILLIGRAM, QD
     Route: 048
  29. CLOZAPINE. [Concomitant]
     Active Substance: CLOZAPINE
     Dosage: 500 MILLIGRAM, QHS
     Route: 048
     Dates: start: 20200715, end: 20210504
  30. VITAMIN B12 [Concomitant]
     Active Substance: CYANOCOBALAMIN
     Dosage: 6000 MICROGRAM, QD
     Route: 060
     Dates: start: 20160614, end: 20191018
  31. HALOPERIDOL. [Concomitant]
     Active Substance: HALOPERIDOL
     Dosage: 10 MILLIGRAM, QD
     Route: 048
     Dates: start: 20171209, end: 20200702
  32. LANSOPRAZOLE. [Concomitant]
     Active Substance: LANSOPRAZOLE
     Dosage: 30 MILLIGRAM, BID
     Route: 048
     Dates: end: 20210504
  33. MODAFINIL. [Concomitant]
     Active Substance: MODAFINIL
     Dosage: UNK
     Route: 048
     Dates: start: 20190701, end: 20191018
  34. TRIHEXYPHENIDYL HCL [Concomitant]
     Active Substance: TRIHEXYPHENIDYL HYDROCHLORIDE
     Dosage: 2.5 MILLIGRAM, TID
     Route: 048
     Dates: start: 20180327, end: 20180424
  35. TRIHEXYPHENIDYL HCL [Concomitant]
     Active Substance: TRIHEXYPHENIDYL HYDROCHLORIDE
     Dosage: 5 MILLIGRAM, BID
     Route: 048
     Dates: end: 20191204
  36. INGREZZA [Suspect]
     Active Substance: VALBENAZINE
     Indication: TARDIVE DYSKINESIA
     Dosage: 80 MILLIGRAM, QD
     Route: 048
     Dates: start: 20170817
  37. INGREZZA [Suspect]
     Active Substance: VALBENAZINE
     Indication: DYSTONIA
     Dosage: 40 MILLIGRAM, QD
     Route: 048
     Dates: start: 20170720, end: 20170817
  38. CLONAZEPAM. [Concomitant]
     Active Substance: CLONAZEPAM
     Dosage: 1 MILLIGRAM, BID
     Route: 048
     Dates: start: 20170720, end: 20171221
  39. MIRALAX [Concomitant]
     Active Substance: POLYETHYLENE GLYCOL 3350
     Dosage: 17 GRAM, QD
     Route: 048
     Dates: start: 20170713, end: 20180523
  40. ATROPINE SULFATE. [Concomitant]
     Active Substance: ATROPINE SULFATE
     Dosage: 2 GTT DROPS, QHS
     Route: 048
     Dates: start: 20180313, end: 20190701
  41. BACLOFEN. [Concomitant]
     Active Substance: BACLOFEN
     Dosage: 10 MILLIGRAM, TID
     Route: 048
     Dates: start: 20170720, end: 20170727
  42. CLOZAPINE. [Concomitant]
     Active Substance: CLOZAPINE
     Dosage: 400 MILLIGRAM, QHS
     Route: 048
     Dates: start: 20170815, end: 20180309
  43. CLOZAPINE. [Concomitant]
     Active Substance: CLOZAPINE
     Dosage: 550 MILLIGRAM, QHS
     Route: 048
     Dates: start: 20190226, end: 20200715
  44. DOCOSAHEXAENOIC ACID [Concomitant]
     Active Substance: DOCONEXENT
     Dosage: 100 MILLIGRAM, TID
     Dates: start: 20170620, end: 20191018
  45. HALOPERIDOL. [Concomitant]
     Active Substance: HALOPERIDOL
     Dosage: 2.5 MILLIGRAM AM AND 5 MILLIGRAM QHS
     Route: 048
     Dates: end: 20170926
  46. TRIHEXYPHENIDYL HCL [Concomitant]
     Active Substance: TRIHEXYPHENIDYL HYDROCHLORIDE
     Dosage: 5 MILLIGRAM, TID
     Route: 048
     Dates: start: 20180424, end: 20180723
  47. TRIHEXYPHENIDYL HCL [Concomitant]
     Active Substance: TRIHEXYPHENIDYL HYDROCHLORIDE
     Dosage: 2.5 MILLIGRAM, BID
     Route: 048
     Dates: end: 20181016
  48. TRINTELLIX [Concomitant]
     Active Substance: VORTIOXETINE HYDROBROMIDE
     Dosage: 20 MILLIGRAM, QD
     Route: 048
     Dates: start: 20210208, end: 20210504
  49. AMANTADINE HCL [Concomitant]
     Active Substance: AMANTADINE HYDROCHLORIDE
     Dosage: 100 MILLIGRAM
     Route: 048
     Dates: start: 20180601, end: 20180621
  50. BACLOFEN. [Concomitant]
     Active Substance: BACLOFEN
     Dosage: 20 MILLIGRAM, TID
     Route: 048
     Dates: start: 20170727, end: 20170921
  51. CLOZAPINE. [Concomitant]
     Active Substance: CLOZAPINE
     Dosage: UNK UNK, QHS
     Route: 048
     Dates: start: 20180309, end: 20180327
  52. HALOPERIDOL. [Concomitant]
     Active Substance: HALOPERIDOL
     Dosage: 2 MILLIGRAM, TID
     Route: 048
     Dates: start: 20210307, end: 20210504
  53. LINZESS [Concomitant]
     Active Substance: LINACLOTIDE
     Dosage: 145 MICROGRAM, QD
     Route: 048
     Dates: start: 20190924, end: 20201120
  54. MIRTAZAPINE. [Concomitant]
     Active Substance: MIRTAZAPINE
     Dosage: 15 MILLIGRAM
     Route: 048
     Dates: start: 20170523, end: 20170731
  55. TRIHEXYPHENIDYL HCL [Concomitant]
     Active Substance: TRIHEXYPHENIDYL HYDROCHLORIDE
     Dosage: 2.5 MILLIGRAM, TID
     Route: 048
     Dates: start: 20180723, end: 20180827
  56. LACTULOSE. [Concomitant]
     Active Substance: LACTULOSE
     Dosage: 30 MILLILITER, TID
     Route: 048
  57. MELATONIN [Concomitant]
     Active Substance: MELATONIN
     Dosage: 3 MILLIGRAM, PRN
     Route: 048
  58. MIRALAX [Concomitant]
     Active Substance: POLYETHYLENE GLYCOL 3350
     Dosage: 17 GRAM, QD
     Route: 048
  59. AMANTADINE HCL [Concomitant]
     Active Substance: AMANTADINE HYDROCHLORIDE
     Dosage: 100 MILLIGRAM, TID
     Route: 048
     Dates: start: 20201023, end: 20201218
  60. CLOZAPINE. [Concomitant]
     Active Substance: CLOZAPINE
     Dosage: 500 MILLIGRAM, QHS
     Route: 048
     Dates: start: 20180327, end: 20190226
  61. HALOPERIDOL. [Concomitant]
     Active Substance: HALOPERIDOL
     Dosage: 2.5 MILLIGRAM BID AND 5 MILLIGRAM QHS
     Route: 048
     Dates: end: 20170915
  62. HALOPERIDOL. [Concomitant]
     Active Substance: HALOPERIDOL
     Dosage: 5 MILLIGRAM, QHS
     Route: 048
     Dates: start: 20170926, end: 20171012
  63. HALOPERIDOL. [Concomitant]
     Active Substance: HALOPERIDOL
     Dosage: 10 MILLIGRAM, QHS
     Route: 048
     Dates: end: 20190409
  64. CEREFOLIN NAC [ACETYLCYSTEINE;CALCIUM LEVOMEFOLATE;MECOBALAMIN] [Concomitant]
     Active Substance: ACETYLCYSTEINE\LEVOMEFOLATE CALCIUM\METHYLCOBALAMIN
     Dosage: 600 MILLIGRAM, QD
     Route: 048
     Dates: start: 20191018, end: 20200702
  65. CLONAZEPAM. [Concomitant]
     Active Substance: CLONAZEPAM
     Indication: ANXIETY
     Dosage: 2 MILLIGRAM
     Route: 048
     Dates: start: 20210218
  66. DULCOLAX STOOL SOFTENER [Concomitant]
     Active Substance: DOCUSATE SODIUM
     Dosage: 100 MILLIGRAM, PRN
     Route: 048
  67. AMANTADINE HCL [Concomitant]
     Active Substance: AMANTADINE HYDROCHLORIDE
     Dosage: UNK MILLIGRAM
     Route: 048
     Dates: start: 20180523, end: 20180523
  68. ATROPINE SULFATE. [Concomitant]
     Active Substance: ATROPINE SULFATE
     Dosage: 2 GTT DROPS, EVERY 8 HOURS
     Route: 060
     Dates: start: 20190702, end: 20210504
  69. DELSYM [Concomitant]
     Active Substance: DEXTROMETHORPHAN
     Dosage: 10 MILLILITER, PRN (EVERY 12 HOURS)
     Route: 048
     Dates: start: 20170701, end: 20170815
  70. HALOPERIDOL. [Concomitant]
     Active Substance: HALOPERIDOL
     Dosage: 5 MILLIGRAM, TID
     Route: 048
     Dates: start: 20170818, end: 20170829
  71. TRIHEXYPHENIDYL HCL [Concomitant]
     Active Substance: TRIHEXYPHENIDYL HYDROCHLORIDE
     Dosage: 5 MILLIGRAM, TID
     Route: 048
     Dates: start: 20170912, end: 20180327

REACTIONS (3)
  - Respiratory distress [Recovered/Resolved]
  - Off label use [Unknown]
  - Pneumonia aspiration [Recovered/Resolved]

NARRATIVE: CASE EVENT DATE: 20170817
